FAERS Safety Report 11685119 (Version 1)
Quarter: 2015Q4

REPORT INFORMATION
  Report Type: Not Available
  Country: IN (occurrence: IN)
  Receive Date: 20151030
  Receipt Date: 20151030
  Transmission Date: 20160304
  Serious: No
  Sender: FDA-Public Use
  Company Number: IN-LUPIN PHARMACEUTICALS INC.-E2B_00003402

PATIENT
  Sex: Male

DRUGS (1)
  1. CEFAXONE [Suspect]
     Active Substance: CEFTRIAXONE
     Indication: PRODUCT USED FOR UNKNOWN INDICATION
     Route: 042
     Dates: start: 201503, end: 201503

REACTIONS (1)
  - Pruritus generalised [Recovered/Resolved]

NARRATIVE: CASE EVENT DATE: 201503
